FAERS Safety Report 12409567 (Version 3)
Quarter: 2016Q2

REPORT INFORMATION
  Report Type: Spontaneous
  Country: JP (occurrence: JP)
  Receive Date: 20160526
  Receipt Date: 20160616
  Transmission Date: 20160815
  Serious: Yes (Hospitalization)
  Sender: FDA-Public Use
  Company Number: JP-ALLERGAN-1658194US

PATIENT
  Age: 3 Year
  Sex: Male

DRUGS (1)
  1. BOTOX [Suspect]
     Active Substance: ONABOTULINUMTOXINA
     Indication: MUSCLE SPASMS
     Dosage: UNK, SINGLE
     Route: 030
     Dates: start: 20160518, end: 20160518

REACTIONS (3)
  - Dyspnoea [Recovered/Resolved]
  - Pneumonia aspiration [Recovered/Resolved]
  - Pneumonia [Recovered/Resolved]

NARRATIVE: CASE EVENT DATE: 20160519
